FAERS Safety Report 19231209 (Version 1)
Quarter: 2021Q2

REPORT INFORMATION
  Report Type: Report from Study
  Country: US (occurrence: US)
  Receive Date: 20210507
  Receipt Date: 20210507
  Transmission Date: 20210717
  Serious: Yes (Hospitalization)
  Sender: FDA-Public Use
  Company Number: US-JNJFOC-20210502940

PATIENT
  Age: 42 Year
  Sex: Female

DRUGS (3)
  1. UPTRAVI [Suspect]
     Active Substance: SELEXIPAG
     Dosage: 200/800 MCG AM, 1000 MCG PM
     Route: 048
  2. UPTRAVI [Suspect]
     Active Substance: SELEXIPAG
     Route: 048
  3. UPTRAVI [Suspect]
     Active Substance: SELEXIPAG
     Indication: PULMONARY ARTERIAL HYPERTENSION
     Dosage: 200 MCG QD, 800 MCG BID
     Route: 048
     Dates: start: 202012

REACTIONS (5)
  - Headache [Unknown]
  - Hyperhidrosis [Unknown]
  - Fluid overload [Unknown]
  - Diarrhoea [Unknown]
  - Vomiting [Unknown]
